FAERS Safety Report 9804749 (Version 1)
Quarter: 2014Q1

REPORT INFORMATION
  Report Type: Report from Study
  Country: FR (occurrence: FR)
  Receive Date: 20140108
  Receipt Date: 20140108
  Transmission Date: 20141002
  Serious: Yes (Death)
  Sender: FDA-Public Use
  Company Number: FR-ASTRAZENECA-2014SE01452

PATIENT
  Age: 78 Year
  Sex: Male

DRUGS (2)
  1. ZOLADEX [Suspect]
     Indication: PROSTATE CANCER
     Route: 058
     Dates: start: 20110208, end: 201105
  2. RADIATION THERAPY [Suspect]
     Indication: PROSTATE CANCER
     Dosage: 1 RT 80 GY
     Route: 065

REACTIONS (1)
  - Ischaemic stroke [Fatal]
